FAERS Safety Report 7141386-7 (Version None)
Quarter: 2010Q4

REPORT INFORMATION
  Report Type: 
  Country: None (occurrence: None)
  Receive Date: 20101203
  Receipt Date: 20101203
  Transmission Date: 20110411
  Serious: Yes (Hospitalization)
  Sender: FDA-Public Use
  Company Number: None

PATIENT
  Sex: Male
  Weight: 41.368 kg

DRUGS (1)
  1. FOLFOX [Suspect]

REACTIONS (2)
  - APHASIA [None]
  - BRAIN NEOPLASM MALIGNANT [None]
